FAERS Safety Report 8574111 (Version 2)
Quarter: 2013Q1

REPORT INFORMATION
  Report Type: Spontaneous
  Country: US (occurrence: US)
  Receive Date: 20120522
  Receipt Date: 20130305
  Transmission Date: 20140127
  Serious: No
  Sender: FDA-Public Use
  Company Number: US-ASTRAZENECA-2012SE30688

PATIENT
  Age: 46 Year
  Sex: Female

DRUGS (1)
  1. SYMBICORT PMDI [Suspect]
     Dosage: UNKNOWN
     Route: 055

REACTIONS (3)
  - Asthma [Unknown]
  - Dizziness [Unknown]
  - Drug dose omission [Unknown]
